FAERS Safety Report 20840973 (Version 1)
Quarter: 2022Q2

REPORT INFORMATION
  Report Type: Spontaneous
  Country: IN (occurrence: IN)
  Receive Date: 20220517
  Receipt Date: 20220517
  Transmission Date: 20220721
  Serious: Yes (Hospitalization)
  Sender: FDA-Public Use
  Company Number: IN-LUPIN PHARMACEUTICALS INC.-2022-07060

PATIENT
  Age: 2 Year
  Sex: Female

DRUGS (1)
  1. LEVOTHYROXINE SODIUM [Suspect]
     Active Substance: LEVOTHYROXINE SODIUM
     Indication: Product used for unknown indication
     Dosage: UNK, THE PATIENT RECEIVED ACCIDENTAL INGESTION OF 1.5MG OF LEVOTHYROXINE SODIUM TABLETS (20 TABLETS
     Route: 048

REACTIONS (3)
  - Irritability [Recovered/Resolved]
  - Psychomotor hyperactivity [Recovered/Resolved]
  - Accidental overdose [Unknown]
